FAERS Safety Report 7551352 (Version 2)
Quarter: 2012Q4

REPORT INFORMATION
  Report Type: 
  Country: US (occurrence: US)
  Receive Date: 20100824
  Receipt Date: 20120903
  Transmission Date: 20130627
  Serious: Yes (Death)
  Sender: FDA-Public Use
  Company Number: US-BAYER-201031167NA

PATIENT
  Age: 36 Year
  Sex: Female
  Weight: 142 kg

DRUGS (15)
  1. YAZ [Suspect]
     Dosage: UNK UNK, UNK
     Dates: start: 200808, end: 200908
  2. TOPIRAMATE [Concomitant]
  3. FLUOXETINE [Concomitant]
  4. DIPHENHYDRAMINE [Concomitant]
  5. ADVAIR [Concomitant]
  6. ALBUTEROL [Concomitant]
  7. RISPERIDONE [Concomitant]
     Dosage: UNK
     Dates: start: 20090731
  8. FLUCONAZOLE [Concomitant]
     Dosage: UNK
     Dates: start: 20090728
  9. AZITHROMYCIN [Concomitant]
     Dosage: UNK
     Dates: start: 20090724
  10. CLINDAMYCIN [Concomitant]
     Dosage: UNK
     Dates: start: 20090716
  11. VALTREX [Concomitant]
     Dosage: UNK
     Dates: start: 20090612
  12. SMZ-TMP [Concomitant]
     Dosage: UNK
     Dates: start: 20090609
  13. MECLIZINE [Concomitant]
     Dosage: UNK
     Dates: start: 20090601
  14. GEMFIBROZIL [Concomitant]
     Dosage: UNK
     Dates: start: 20090613
  15. XANAX [Concomitant]

REACTIONS (1)
  - Pulmonary embolism [Fatal]
